FAERS Safety Report 8229450-2 (Version None)
Quarter: 2012Q1

REPORT INFORMATION
  Report Type: 
  Country: None (occurrence: None)
  Receive Date: 20120322
  Receipt Date: 20120309
  Transmission Date: 20120608
  Serious: Yes (Other)
  Sender: FDA-Public Use
  Company Number: US-ROCHE-1021567

PATIENT
  Sex: Female

DRUGS (3)
  1. COPEGUS [Suspect]
     Indication: HEPATITIS C
     Dosage: 800 MG DIVIDED DOSES
     Dates: start: 20111212
  2. TELAPREVIR [Suspect]
     Indication: HEPATITIS C
     Dosage: 2 TABLETS THRICE DAILY
     Dates: start: 20111212, end: 20120205
  3. PEGINTERFERON ALFA-2A [Suspect]
     Indication: HEPATITIS C
     Dates: start: 20111212

REACTIONS (6)
  - PRURITUS [None]
  - WHITE BLOOD CELL COUNT DECREASED [None]
  - FAECES DISCOLOURED [None]
  - DRY SKIN [None]
  - MASS [None]
  - SOMNOLENCE [None]
